FAERS Safety Report 8047090-5 (Version None)
Quarter: 2012Q1

REPORT INFORMATION
  Report Type: 
  Country: None (occurrence: None)
  Receive Date: 20120116
  Receipt Date: 20120110
  Transmission Date: 20120608
  Serious: Yes (Other)
  Sender: FDA-Public Use
  Company Number: BR-JNJFOC-20120104921

PATIENT
  Sex: Male

DRUGS (2)
  1. NICOTINE [Suspect]
     Indication: SMOKING CESSATION THERAPY
     Dosage: FOR FOUR YEARS
     Route: 048
     Dates: start: 20080101
  2. NICORETTE [Suspect]
     Indication: SMOKING CESSATION THERAPY
     Dosage: FOR FOUR YEARS
     Route: 048
     Dates: start: 20080101

REACTIONS (3)
  - MYALGIA [None]
  - INTENTIONAL DRUG MISUSE [None]
  - DEPENDENCE [None]
